FAERS Safety Report 6437964-0 (Version None)
Quarter: 2009Q4

REPORT INFORMATION
  Report Type: 
  Country: None (occurrence: None)
  Receive Date: 20091112
  Receipt Date: 20081023
  Transmission Date: 20100525
  Serious: No
  Sender: FDA-Public Use
  Company Number: US-ASTRAZENECA-2009UW15848

PATIENT
  Age: 78 Year
  Sex: Female

DRUGS (1)
  1. PRILOSEC OTC [Suspect]
     Indication: GASTROOESOPHAGEAL REFLUX DISEASE
     Dosage: UNK DSOE, UNK FREQ FOR 7 DAYS
     Route: 048
     Dates: start: 20081016, end: 20081023

REACTIONS (1)
  - DYSPNOEA [None]
